FAERS Safety Report 6981036-3 (Version None)
Quarter: 2010Q3

REPORT INFORMATION
  Report Type: 
  Country: None (occurrence: None)
  Receive Date: 20100914
  Receipt Date: 20100913
  Transmission Date: 20110219
  Serious: Yes (Hospitalization, Other)
  Sender: FDA-Public Use
  Company Number: GXKR2010DE08619

PATIENT
  Sex: Female

DRUGS (3)
  1. DOXY 1A PHARMA (NGX) [Suspect]
     Indication: BORRELIA TEST POSITIVE
     Dosage: 200 MG, QD
     Route: 048
     Dates: start: 20100706, end: 20100712
  2. RAMIPRIL [Concomitant]
     Dosage: 2.5 MG, BID
  3. THEOPHYLLINE [Concomitant]
     Dosage: 250 MG, QD

REACTIONS (7)
  - ASTHENIA [None]
  - DIARRHOEA [None]
  - DIZZINESS [None]
  - NAUSEA [None]
  - PHOTOSENSITIVITY REACTION [None]
  - PYREXIA [None]
  - SYNCOPE [None]
